FAERS Safety Report 4943218-1 (Version None)
Quarter: 2006Q1

REPORT INFORMATION
  Report Type: 
  Country: None (occurrence: None)
  Receive Date: 20060314
  Receipt Date: 20060303
  Transmission Date: 20060701
  Serious: Yes (Death, Other)
  Sender: FDA-Public Use
  Company Number: US-MERCK-0603USA00786

PATIENT
  Age: 64 Year
  Sex: Female

DRUGS (1)
  1. VIOXX [Suspect]
     Route: 048
     Dates: start: 20000101, end: 20010401

REACTIONS (3)
  - CARDIO-RESPIRATORY ARREST [None]
  - CREUTZFELDT-JAKOB DISEASE [None]
  - MYOCARDIAL INFARCTION [None]
